FAERS Safety Report 21129983 (Version 1)
Quarter: 2022Q3

REPORT INFORMATION
  Report Type: Spontaneous
  Country: US (occurrence: US)
  Receive Date: 20220726
  Receipt Date: 20220726
  Transmission Date: 20221027
  Serious: Yes (Hospitalization, Other)
  Sender: FDA-Public Use
  Company Number: US-APOTEX-2022AP010261

PATIENT
  Sex: Male

DRUGS (3)
  1. LEVOFLOXACIN [Suspect]
     Active Substance: LEVOFLOXACIN
     Indication: Cough
     Dosage: 500 MILLIGRAM
     Route: 065
  2. PREDNISONE [Suspect]
     Active Substance: PREDNISONE
     Indication: Cough
     Dosage: 20-40 MILLIGRAM
     Route: 048
  3. BALSALAZIDE [Concomitant]
     Active Substance: BALSALAZIDE
     Indication: Colitis ulcerative
     Dosage: 750 MILLIGRAM, BID
     Route: 065

REACTIONS (6)
  - Lactobacillus infection [Recovering/Resolving]
  - Septic shock [Recovering/Resolving]
  - Prosthetic valve endocarditis [Recovering/Resolving]
  - Endocarditis [Recovering/Resolving]
  - Septic cerebral embolism [Recovering/Resolving]
  - Bacterial translocation [Recovering/Resolving]
